FAERS Safety Report 25019531 (Version 1)
Quarter: 2025Q1

REPORT INFORMATION
  Report Type: Report from Study
  Country: ZA (occurrence: ZA)
  Receive Date: 20250227
  Receipt Date: 20250227
  Transmission Date: 20250409
  Serious: Yes (Hospitalization)
  Sender: ALEXION PHARMACEUTICALS
  Company Number: ZA-AstraZeneca-CH-00807586A

PATIENT
  Age: 46 Year
  Weight: 99 kg

DRUGS (7)
  1. DAPAGLIFLOZIN [Suspect]
     Active Substance: DAPAGLIFLOZIN
     Indication: Diabetes mellitus
  2. GLUCOPHAGE XR [Concomitant]
     Active Substance: METFORMIN HYDROCHLORIDE
     Indication: Diabetes mellitus
  3. Lipogen [Concomitant]
     Indication: Blood cholesterol
  4. AMLODIPINE BESYLATE\PERINDOPRIL ARGININE [Concomitant]
     Active Substance: AMLODIPINE BESYLATE\PERINDOPRIL ARGININE
     Indication: Hypertension
  5. Allergex [Concomitant]
     Indication: Hypersensitivity
  6. AMMONIUM CHLORIDE\DIPHENHYDRAMINE\ETOFYLLINE\SODIUM CITRATE\THEOPHYLLI [Concomitant]
     Active Substance: AMMONIUM CHLORIDE\DIPHENHYDRAMINE\ETOFYLLINE\SODIUM CITRATE\THEOPHYLLINE
  7. ACETAMINOPHEN\CODEINE\IBUPROFEN [Concomitant]
     Active Substance: ACETAMINOPHEN\CODEINE\IBUPROFEN

REACTIONS (1)
  - Furuncle [Recovering/Resolving]
